FAERS Safety Report 4301717-X (Version None)
Quarter: 2004Q1

REPORT INFORMATION
  Report Type: 
  Country: None (occurrence: None)
  Receive Date: 20040218
  Receipt Date: 20031118
  Transmission Date: 20041129
  Serious: Yes (Other)
  Sender: FDA-Public Use
  Company Number: 2003-11-1308

PATIENT
  Age: 42 Year
  Sex: Female

DRUGS (7)
  1. PEG-INTRON [Suspect]
     Indication: HEPATITIS C
     Dosage: 150 MCG QWK SUBCUTANEOUS
     Route: 058
     Dates: start: 20031003, end: 20031028
  2. REBETOL [Suspect]
     Indication: HEPATITIS C
     Dosage: 1200 MG QD ORAL
     Route: 048
     Dates: start: 20031003, end: 20031028
  3. KLONOPIN [Suspect]
  4. PHENERGAN [Concomitant]
  5. VICODIN ES [Concomitant]
  6. ZANAFLEX (TIZANIDINE HCL) [Concomitant]
  7. SEROSTIM [Concomitant]

REACTIONS (4)
  - ANAEMIA [None]
  - ANXIETY [None]
  - DYSPNOEA [None]
  - TACHYCARDIA [None]
